FAERS Safety Report 19514525 (Version 1)
Quarter: 2021Q3

REPORT INFORMATION
  Report Type: Spontaneous
  Country: MY (occurrence: MY)
  Receive Date: 20210710
  Receipt Date: 20210710
  Transmission Date: 20211014
  Serious: Yes (Hospitalization)
  Sender: FDA-Public Use
  Company Number: MY-EMD SERONO-9250156

PATIENT
  Age: 41 Year
  Sex: Female
  Weight: 34 kg

DRUGS (18)
  1. MULTIVITAMIN                       /02160401/ [Concomitant]
     Active Substance: VITAMINS
     Indication: SUPPLEMENTATION THERAPY
     Dates: start: 20210412, end: 20210623
  2. IBERET                             /07482601/ [Concomitant]
     Indication: SUPPLEMENTATION THERAPY
     Dates: start: 20210623
  3. FERROUS FUMARATE [Concomitant]
     Active Substance: FERROUS FUMARATE
     Indication: SUPPLEMENTATION THERAPY
     Dates: start: 20210412, end: 20210623
  4. VITAMIN B COMPLEX                  /00056201/ [Concomitant]
     Active Substance: CYANOCOBALAMIN
     Indication: SUPPLEMENTATION THERAPY
     Dates: start: 20210412, end: 20210623
  5. DACOMITINIB [Suspect]
     Active Substance: DACOMITINIB
     Indication: NON-SMALL CELL LUNG CANCER METASTATIC
     Route: 065
     Dates: start: 20210421, end: 20210601
  6. POTASSIUM CHLORIDE. [Concomitant]
     Active Substance: POTASSIUM CHLORIDE
     Indication: HYPOKALAEMIA
     Dates: start: 20210616, end: 20210621
  7. MARNON [Concomitant]
     Indication: PROPHYLAXIS
     Dates: start: 2020
  8. HYDROCORTISONE. [Concomitant]
     Active Substance: HYDROCORTISONE
     Indication: RASH
     Dates: start: 20210421
  9. HYDROCORTISONE. [Concomitant]
     Active Substance: HYDROCORTISONE
     Indication: PROPHYLAXIS
  10. GLICLAZIDE [Suspect]
     Active Substance: GLICLAZIDE
     Indication: DIABETES MELLITUS
     Route: 048
     Dates: start: 202103, end: 20210621
  11. PARACETAMOL [Concomitant]
     Active Substance: ACETAMINOPHEN
     Indication: ANALGESIC THERAPY
     Dates: start: 20210412
  12. AMLODIPINE [Concomitant]
     Active Substance: AMLODIPINE BESYLATE
     Indication: HYPERTENSION
     Dates: start: 2020
  13. VITAMIN C [Concomitant]
     Active Substance: ASCORBIC ACID
     Indication: SUPPLEMENTATION THERAPY
     Dates: start: 20210412, end: 20210623
  14. METFORMIN [Suspect]
     Active Substance: METFORMIN HYDROCHLORIDE
     Dosage: DOSE REDUCED
     Route: 048
     Dates: start: 202106
  15. DACOMITINIB [Suspect]
     Active Substance: DACOMITINIB
     Dates: start: 20210611
  16. METFORMIN [Suspect]
     Active Substance: METFORMIN HYDROCHLORIDE
     Indication: DIABETES MELLITUS
     Route: 048
     Dates: start: 202103, end: 20210621
  17. LACTIC ACID W/UREA [Concomitant]
     Indication: PARONYCHIA
     Dates: start: 20210421
  18. LOPERAMIDE [Concomitant]
     Active Substance: LOPERAMIDE
     Indication: DIARRHOEA
     Dates: start: 20210429

REACTIONS (1)
  - Hypoglycaemia [Recovered/Resolved]

NARRATIVE: CASE EVENT DATE: 20210620
